FAERS Safety Report 16311253 (Version 2)
Quarter: 2019Q2

REPORT INFORMATION
  Report Type: Report from Study
  Country: US (occurrence: US)
  Receive Date: 20190514
  Receipt Date: 20190530
  Transmission Date: 20190711
  Serious: Yes (Other)
  Sender: FDA-Public Use
  Company Number: US-ASTRAZENECA-2019SE31833

PATIENT
  Sex: Male

DRUGS (2)
  1. BIOTIN [Concomitant]
     Active Substance: BIOTIN
  2. TAGRISSO [Suspect]
     Active Substance: OSIMERTINIB
     Indication: LUNG NEOPLASM MALIGNANT
     Route: 048
     Dates: start: 20190131

REACTIONS (6)
  - Pulmonary oedema [Unknown]
  - Dry skin [Unknown]
  - Feeding disorder [Unknown]
  - Rash pruritic [Unknown]
  - Hair growth abnormal [Unknown]
  - Hypertension [Unknown]
